FAERS Safety Report 6590856-9 (Version None)
Quarter: 2010Q1

REPORT INFORMATION
  Report Type: 
  Country: None (occurrence: None)
  Receive Date: 20100219
  Receipt Date: 20100216
  Transmission Date: 20100710
  Serious: Yes (Disabling, Other)
  Sender: FDA-Public Use
  Company Number: GB-MERCK-1002GBR00075

PATIENT
  Age: 93 Year
  Sex: Female

DRUGS (5)
  1. FOSAMAX [Suspect]
     Indication: OSTEOPOROSIS
     Route: 048
     Dates: start: 20091001, end: 20100101
  2. ASPIRIN [Concomitant]
     Indication: AORTIC STENOSIS
     Route: 048
     Dates: start: 20070101
  3. CALCIUM PHOSPHATE, TRIBASIC AND CHOLECALCIFEROL [Concomitant]
     Indication: OSTEOPOROSIS
     Route: 048
     Dates: start: 20091001, end: 20100101
  4. OMEPRAZOLE [Concomitant]
     Indication: GASTRIC DISORDER
     Route: 048
  5. VERAPAMIL HYDROCHLORIDE [Concomitant]
     Indication: HYPERTENSION
     Route: 048

REACTIONS (4)
  - DECREASED APPETITE [None]
  - DYSPHAGIA [None]
  - MOUTH ULCERATION [None]
  - WEIGHT DECREASED [None]
